FAERS Safety Report 7586705-2 (Version None)
Quarter: 2011Q3

REPORT INFORMATION
  Report Type: 
  Country: None (occurrence: None)
  Receive Date: 20110701
  Receipt Date: 20110624
  Transmission Date: 20111222
  Serious: Yes (Hospitalization)
  Sender: FDA-Public Use
  Company Number: US-GENZYME-CERZ-1002133

PATIENT

DRUGS (2)
  1. COMTAN [Concomitant]
     Indication: PARKINSON'S DISEASE
  2. CEREZYME [Suspect]
     Indication: GAUCHER'S DISEASE
     Dosage: 59 U/KG, Q2W
     Route: 042
     Dates: start: 19981015

REACTIONS (1)
  - HALLUCINATION [None]
